FAERS Safety Report 4910372-7 (Version None)
Quarter: 2006Q1

REPORT INFORMATION
  Report Type: 
  Country: None (occurrence: None)
  Receive Date: 20060209
  Receipt Date: 20060131
  Transmission Date: 20060701
  Serious: Yes (Hospitalization)
  Sender: FDA-Public Use
  Company Number: 163-20785-06010345

PATIENT
  Age: 56 Year
  Sex: Female

DRUGS (7)
  1. THALOMID [Suspect]
     Indication: FIBROSIS
     Dosage: 100 MG, DAILY, ORAL
     Route: 048
     Dates: start: 20051108
  2. PROGRAF [Concomitant]
  3. CELLCEPT [Concomitant]
  4. PREDNISONE [Concomitant]
  5. INSULIN [Concomitant]
  6. COREG [Concomitant]
  7. LASIX [Concomitant]

REACTIONS (1)
  - URINARY TRACT INFECTION [None]
